FAERS Safety Report 19463390 (Version 6)
Quarter: 2021Q4

REPORT INFORMATION
  Report Type: Report from Study
  Country: DE (occurrence: DE)
  Receive Date: 20210625
  Receipt Date: 20211025
  Transmission Date: 20220304
  Serious: Yes (Hospitalization, Other)
  Sender: FDA-Public Use
  Company Number: DE-002147023-NVSC2020DE335074

PATIENT
  Age: 83 Year
  Sex: Female
  Weight: 62 kg

DRUGS (4)
  1. LETROZOLE [Suspect]
     Active Substance: LETROZOLE
     Indication: Breast cancer metastatic
     Dosage: 2.5 MILLIGRAM, QD (2.5 MG, QD (DAILY DOSE))
     Route: 048
     Dates: start: 20201124
  2. KISQALI [Suspect]
     Active Substance: RIBOCICLIB
     Indication: Breast cancer metastatic
     Dosage: 600 MILLIGRAM, QD (600 MILLIGRAM, QD (600 MG, QD (DAILY DOSE) (21 DAYS INTAKE, 7 DAYS PAUSE)))
     Route: 048
     Dates: start: 20201124
  3. KISQALI [Suspect]
     Active Substance: RIBOCICLIB
     Dosage: 300 MILLIGRAM, QD (300 MG, QD (DAILY DOSE) (21 DAYS INTAKE, 7 DAYS PAUSE)
     Route: 048
     Dates: start: 20201124, end: 20210307
  4. KISQALI [Suspect]
     Active Substance: RIBOCICLIB
     Dosage: 300 MILLIGRAM, QD (300 MG, QD (DAILY DOSE) (SCHEMA 21 DAYS INTAKE, 7 DAYS PAUSE))
     Route: 048
     Dates: start: 20210324

REACTIONS (7)
  - Malignant pleural effusion [Recovered/Resolved]
  - Dyspnoea exertional [Recovered/Resolved]
  - Pleural effusion [Recovered/Resolved]
  - Dyspnoea [Recovered/Resolved]
  - Back pain [Recovered/Resolved]
  - Diarrhoea [Recovered/Resolved]
  - Fatigue [Not Recovered/Not Resolved]

NARRATIVE: CASE EVENT DATE: 20201202
